FAERS Safety Report 6845872-6 (Version None)
Quarter: 2010Q3

REPORT INFORMATION
  Report Type: 
  Country: None (occurrence: None)
  Receive Date: 20100712
  Receipt Date: 20100706
  Transmission Date: 20110219
  Serious: Yes (Life-Threatening, Hospitalization)
  Sender: FDA-Public Use
  Company Number: 2010SP001894

PATIENT
  Age: 45 Year
  Sex: Female
  Weight: 79.1 kg

DRUGS (9)
  1. CICLESONIDE HFA (160 UG) [Suspect]
     Indication: RHINITIS PERENNIAL
     Dosage: 160 UG; QD; NASAL
     Route: 045
     Dates: start: 20100414, end: 20100629
  2. ZOLOFT /01011401/ (CON.) [Concomitant]
  3. CLONAZEPAM (CON.) [Concomitant]
  4. NAPROXEN (CON.) [Concomitant]
  5. OMEPRAZOLE (CON.) [Concomitant]
  6. IBUPROFEN (CON.) [Concomitant]
  7. FLUCONAZOLE (PREV.) [Concomitant]
  8. ALEVE (PREV.) [Concomitant]
  9. TYLENOL (PREV.) [Concomitant]

REACTIONS (4)
  - BRONCHITIS [None]
  - GENERAL PHYSICAL HEALTH DETERIORATION [None]
  - PNEUMONIA [None]
  - RESPIRATORY FAILURE [None]
